FAERS Safety Report 8156525-9 (Version None)
Quarter: 2012Q1

REPORT INFORMATION
  Report Type: 
  Country: None (occurrence: None)
  Receive Date: 20120221
  Receipt Date: 20120221
  Transmission Date: 20120608
  Serious: Yes (Life-Threatening)
  Sender: FDA-Public Use
  Company Number: None

PATIENT
  Age: 64 Year
  Sex: Male

DRUGS (2)
  1. CIPROFLOXACIN [Suspect]
     Indication: INFECTION
     Dates: start: 20110814, end: 20110815
  2. CIPROFLOXACIN [Suspect]
     Indication: SURGERY
     Dates: start: 20110814, end: 20110815

REACTIONS (3)
  - ATRIOVENTRICULAR BLOCK COMPLETE [None]
  - PALPITATIONS [None]
  - CARDIAC ARREST [None]
